FAERS Safety Report 24242593 (Version 1)
Quarter: 2024Q3

REPORT INFORMATION
  Report Type: Spontaneous
  Country: US (occurrence: None)
  Receive Date: 20240822
  Receipt Date: 20240822
  Transmission Date: 20241016
  Serious: Yes (Hospitalization)
  Sender: Public
  Company Number: None

PATIENT
  Sex: Female

DRUGS (2)
  1. PAZOPANIB HYDROCHLORIDE [Suspect]
     Active Substance: PAZOPANIB HYDROCHLORIDE
     Indication: Connective tissue neoplasm
     Dosage: 200MG   800 MG  ORAL
     Route: 048
     Dates: start: 202405
  2. VOTRIENT [Concomitant]

REACTIONS (3)
  - Oedema peripheral [None]
  - Rash [None]
  - Blood pressure increased [None]
